FAERS Safety Report 23416571 (Version 1)
Quarter: 2024Q1

REPORT INFORMATION
  Report Type: Spontaneous
  Country: US (occurrence: US)
  Receive Date: 20240118
  Receipt Date: 20240118
  Transmission Date: 20240409
  Serious: No
  Sender: FDA-Public Use
  Company Number: US-OPELLA-2024OHG001509

PATIENT

DRUGS (1)
  1. ASPERCREME WITH LIDOCAINE XL [Suspect]
     Active Substance: LIDOCAINE
     Dosage: APPLYING TO THE ROTATOR CUFF AREA
     Route: 003

REACTIONS (3)
  - Urticaria [Unknown]
  - Skin ulcer [Unknown]
  - Erythema [Unknown]
